FAERS Safety Report 9346464 (Version 2)
Quarter: 2013Q4

REPORT INFORMATION
  Report Type: Spontaneous
  Country: US (occurrence: US)
  Receive Date: 20130613
  Receipt Date: 20131021
  Transmission Date: 20140711
  Serious: Yes (Hospitalization, Other)
  Sender: FDA-Public Use
  Company Number: US-BAYER-2013-069385

PATIENT
  Age: 23 Year
  Sex: Female
  Weight: 63.04 kg

DRUGS (1)
  1. MIRENA [Suspect]
     Indication: CONTRACEPTION
     Dosage: 20 MCG/24HR, CONT
     Route: 015
     Dates: start: 20110610, end: 20120713

REACTIONS (7)
  - Device dislocation [None]
  - Ectopic pregnancy with contraceptive device [Recovered/Resolved]
  - Drug ineffective [None]
  - Injury [None]
  - Abdominal pain [None]
  - Emotional distress [None]
  - Vaginal haemorrhage [None]
